FAERS Safety Report 8113399-X (Version None)
Quarter: 2012Q1

REPORT INFORMATION
  Report Type: 
  Country: None (occurrence: None)
  Receive Date: 20120203
  Receipt Date: 20120130
  Transmission Date: 20120608
  Serious: Yes (Hospitalization)
  Sender: FDA-Public Use
  Company Number: PHEH2012US002745

PATIENT
  Age: 20 Year
  Sex: Female

DRUGS (2)
  1. TOBI [Suspect]
     Dosage: 300 MG, TWICE DAILY FOR 28 DAYS EVERY OTHER MONTH
     Dates: start: 20100909
  2. PULMOZYME [Concomitant]

REACTIONS (1)
  - LUNG INFECTION [None]
